FAERS Safety Report 4567494-2 (Version None)
Quarter: 2005Q1

REPORT INFORMATION
  Report Type: 
  Country: None (occurrence: None)
  Receive Date: 20050127
  Receipt Date: 20050113
  Transmission Date: 20050727
  Serious: Yes (Hospitalization)
  Sender: FDA-Public Use
  Company Number: 2004-0007840

PATIENT
  Sex: Female

DRUGS (1)
  1. HEPSERA [Suspect]

REACTIONS (1)
  - LIPASE INCREASED [None]
